FAERS Safety Report 6765613-0 (Version None)
Quarter: 2010Q2

REPORT INFORMATION
  Report Type: 
  Country: None (occurrence: None)
  Receive Date: 20100611
  Receipt Date: 20100601
  Transmission Date: 20101027
  Serious: Yes (Hospitalization, Other)
  Sender: FDA-Public Use
  Company Number: FR-ELI_LILLY_AND_COMPANY-FR201006000029

PATIENT
  Age: 53 Year
  Sex: Female

DRUGS (2)
  1. BYETTA [Suspect]
     Dosage: UNK, UNKNOWN
     Route: 058
     Dates: start: 20100304, end: 20100401
  2. GLUCOPHAGE [Concomitant]

REACTIONS (4)
  - AUTOMATISM [None]
  - HALLUCINATION, AUDITORY [None]
  - SUICIDAL IDEATION [None]
  - SUICIDE ATTEMPT [None]
